FAERS Safety Report 20855647 (Version 3)
Quarter: 2022Q3

REPORT INFORMATION
  Report Type: Spontaneous
  Country: US (occurrence: US)
  Receive Date: 20220520
  Receipt Date: 20220713
  Transmission Date: 20221026
  Serious: No
  Sender: FDA-Public Use
  Company Number: US-PFIZER INC-202200578696

PATIENT
  Age: 50 Year
  Sex: Male

DRUGS (10)
  1. INLYTA [Suspect]
     Active Substance: AXITINIB
     Indication: Renal cancer
     Dosage: 5 MG, 2X/DAY (1 TABLET EVERY 12 HOURS)
     Route: 048
     Dates: start: 202203
  2. INLYTA [Suspect]
     Active Substance: AXITINIB
     Dosage: 7 MG, TAKE 2 TABLETS (2 MG) EVERY 12 HOURS. TAKE WITH ONE 5 MG TABLET TO EQUAL 7 MG
     Route: 048
  3. INLYTA [Suspect]
     Active Substance: AXITINIB
     Dosage: 1 DF, 2X/DAY (TAKE 1 TABLET BY MOUTH EVERY 12 HOURS WITH TWO 1 MG TABLETS TO EQUAL 7 MG)
     Route: 048
  4. ADDERALL [Concomitant]
     Active Substance: AMPHETAMINE ASPARTATE\AMPHETAMINE SULFATE\DEXTROAMPHETAMINE SACCHARATE\DEXTROAMPHETAMINE SULFATE
     Dosage: UNK
  5. BENZONATATE [Concomitant]
     Active Substance: BENZONATATE
     Dosage: UNK
  6. FENOFIBRATE [Concomitant]
     Active Substance: FENOFIBRATE
     Dosage: UNK
  7. HYDROCHLOROTHIAZIDE\LISINOPRIL [Concomitant]
     Active Substance: HYDROCHLOROTHIAZIDE\LISINOPRIL
     Dosage: UNK
  8. TRAZODONE HYDROCHLORIDE [Concomitant]
     Active Substance: TRAZODONE HYDROCHLORIDE
     Dosage: UNK
  9. AZITHROMYCIN +PHARMA [Concomitant]
     Dosage: UNK
  10. KEYTRUDA [Concomitant]
     Active Substance: PEMBROLIZUMAB
     Dosage: UNK

REACTIONS (7)
  - Sinusitis [Unknown]
  - Headache [Unknown]
  - Fatigue [Unknown]
  - Diarrhoea [Unknown]
  - Hypertension [Unknown]
  - Feeling abnormal [Unknown]
  - Product dose omission in error [Unknown]

NARRATIVE: CASE EVENT DATE: 20220101
